FAERS Safety Report 10205153 (Version 3)
Quarter: 2014Q3

REPORT INFORMATION
  Report Type: Spontaneous
  Country: US (occurrence: US)
  Receive Date: 20140529
  Receipt Date: 20140804
  Transmission Date: 20150326
  Serious: No
  Sender: FDA-Public Use
  Company Number: US-009507513-1405USA014861

PATIENT
  Age: 83 Year
  Sex: Male

DRUGS (1)
  1. TICE BCG [Suspect]
     Active Substance: BACILLUS CALMETTE-GUERIN SUBSTRAIN TICE LIVE ANTIGEN
     Indication: BLADDER CANCER
     Dosage: ONCE PER WEEK FOR 6 WEEKS
     Route: 043
     Dates: start: 20140430, end: 20140430

REACTIONS (1)
  - Urethral stenosis [Not Recovered/Not Resolved]
